FAERS Safety Report 9306637 (Version 2)
Quarter: 2013Q2

REPORT INFORMATION
  Report Type: Spontaneous
  Country: US (occurrence: None)
  Receive Date: 20130328
  Receipt Date: 20130417
  Transmission Date: 20140414
  Serious: Yes (Other)
  Sender: FDA-Public Use
  Company Number: VAL_01121_2012

PATIENT
  Sex: Female
  Weight: 3.3 kg

DRUGS (2)
  1. METHYLERGONOVINE [Suspect]
     Indication: PRODUCT USED FOR UNKNOWN INDICATION
     Dosage: (INADVERENTLY ADMINISTERED)
     Route: 030
  2. VITAMIN K [Suspect]
     Indication: PRODUCT USED FOR UNKNOWN INDICATION
     Dosage: (DF)

REACTIONS (12)
  - Wrong drug administered [None]
  - Wrong drug administered [None]
  - Cyanosis neonatal [None]
  - Cyanosis [None]
  - Neonatal respiratory depression [None]
  - Hypertonia [None]
  - Dyskinesia [None]
  - Apnoea neonatal [None]
  - Crying [None]
  - Livedo reticularis [None]
  - Malaise [None]
  - Toxicity to various agents [None]
